FAERS Safety Report 14973708 (Version 1)
Quarter: 2018Q2

REPORT INFORMATION
  Report Type: Spontaneous
  Country: US (occurrence: US)
  Receive Date: 20180605
  Receipt Date: 20180605
  Transmission Date: 20180711
  Serious: Yes (Other)
  Sender: FDA-Public Use
  Company Number: US-PFIZER INC-2018223841

PATIENT
  Age: 56 Year
  Sex: Male

DRUGS (1)
  1. METHOTREXATE SODIUM. [Suspect]
     Active Substance: METHOTREXATE SODIUM
     Dosage: 0.6 ML, WEEKLY (0.6CC/WEEK)
     Dates: start: 201211

REACTIONS (8)
  - Condition aggravated [Unknown]
  - Latent tuberculosis [Unknown]
  - Drug effect incomplete [Unknown]
  - Upper respiratory tract infection [Unknown]
  - Joint stiffness [Unknown]
  - Liver function test increased [Unknown]
  - Fatigue [Unknown]
  - Neuropathy peripheral [Unknown]

NARRATIVE: CASE EVENT DATE: 201309
